FAERS Safety Report 5372572-4 (Version None)
Quarter: 2007Q2

REPORT INFORMATION
  Report Type: 
  Country: None (occurrence: None)
  Receive Date: 20070626
  Receipt Date: 20070612
  Transmission Date: 20071010
  Serious: Yes (Death, Life-Threatening)
  Sender: FDA-Public Use
  Company Number: POMP-11088

PATIENT
  Age: 6 Month
  Sex: Female
  Weight: 6 kg

DRUGS (1)
  1. MYOZYME [Suspect]
     Indication: GLYCOGEN STORAGE DISEASE TYPE II
     Dosage: 20 MG/KG Q2WKS IV
     Route: 042
     Dates: start: 20070607, end: 20070607

REACTIONS (6)
  - ARRHYTHMIA [None]
  - ASTHMA [None]
  - BRONCHIAL HYPERREACTIVITY [None]
  - BRONCHOSPASM [None]
  - PNEUMONIA ASPIRATION [None]
  - VENTRICULAR FIBRILLATION [None]
